FAERS Safety Report 6172320-4 (Version None)
Quarter: 2009Q2

REPORT INFORMATION
  Report Type: 
  Country: None (occurrence: None)
  Receive Date: 20090429
  Receipt Date: 20080716
  Transmission Date: 20091009
  Serious: No
  Sender: FDA-Public Use
  Company Number: A0737959A

PATIENT
  Age: 56 Year
  Sex: Female

DRUGS (5)
  1. AMERGE [Suspect]
     Indication: MIGRAINE
     Dosage: 2.5MG AS REQUIRED
     Route: 048
     Dates: start: 19980101
  2. PSEUDOEPHEDRINE HCL [Concomitant]
  3. ENABLEX [Concomitant]
  4. OTC ANTIHISTAMINE [Concomitant]
  5. ATARAX [Concomitant]

REACTIONS (3)
  - DIARRHOEA [None]
  - EXPIRED DRUG ADMINISTERED [None]
  - VOMITING [None]
